FAERS Safety Report 10955411 (Version 1)
Quarter: 2015Q1

REPORT INFORMATION
  Report Type: Spontaneous
  Country: US (occurrence: None)
  Receive Date: 20150309
  Receipt Date: 20150309
  Transmission Date: 20150721
  Serious: Yes (Other)
  Sender: FDA-Public Use
  Company Number: A14-0064D

PATIENT
  Age: 24 Year
  Sex: Female

DRUGS (2)
  1. A:CENT T,G [Suspect]
     Active Substance: ALLERGENIC EXTRACTS
     Indication: IMMUNE ENHANCEMENT THERAPY
     Dates: start: 20141007
  2. B: RW,G,WD MX [Suspect]
     Active Substance: ALLERGENIC EXTRACTS
     Indication: IMMUNE ENHANCEMENT THERAPY
     Dates: start: 20141007

REACTIONS (2)
  - Wheezing [None]
  - Nasal congestion [None]

NARRATIVE: CASE EVENT DATE: 20141007
